FAERS Safety Report 8811899 (Version 1)
Quarter: 2012Q4

REPORT INFORMATION
  Report Type: Spontaneous
  Country: US (occurrence: None)
  Receive Date: 20120926
  Receipt Date: 20120926
  Transmission Date: 20130627
  Serious: Yes (Disabling)
  Sender: FDA-Public Use
  Company Number: None

PATIENT
  Age: 57 Year
  Sex: Male
  Weight: 93.44 kg

DRUGS (1)
  1. OXALIPLATIN [Suspect]
     Indication: COLON CANCER
     Dates: start: 20070705, end: 20080110

REACTIONS (3)
  - Neuropathy peripheral [None]
  - Hepatic enzyme increased [None]
  - Full blood count abnormal [None]
